FAERS Safety Report 23808618 (Version 1)
Quarter: 2024Q2

REPORT INFORMATION
  Report Type: Report from Study
  Country: US (occurrence: US)
  Receive Date: 20240502
  Receipt Date: 20240502
  Transmission Date: 20240716
  Serious: Yes (Hospitalization)
  Sender: FDA-Public Use
  Company Number: US-Pharmaand-2024000293

PATIENT
  Sex: Female

DRUGS (1)
  1. RUBRACA [Suspect]
     Active Substance: RUCAPARIB CAMSYLATE
     Indication: Malignant peritoneal neoplasm
     Dosage: 500 MG, EVERY 12 HOURS
     Route: 048

REACTIONS (3)
  - Gastrooesophageal reflux disease [Recovering/Resolving]
  - Dry skin [Recovering/Resolving]
  - Product dose omission issue [Unknown]
